FAERS Safety Report 24335969 (Version 1)
Quarter: 2024Q3

REPORT INFORMATION
  Report Type: Spontaneous
  Country: BE (occurrence: BE)
  Receive Date: 20240919
  Receipt Date: 20240919
  Transmission Date: 20241017
  Serious: Yes (Hospitalization, Other)
  Sender: AUROBINDO
  Company Number: BE-FAMHP-DHH-N2022-118374

PATIENT
  Sex: Female

DRUGS (2)
  1. AMOXICILLIN TRIHYDRATE [Suspect]
     Active Substance: AMOXICILLIN
     Indication: Tonsillitis
     Dosage: UNK
     Route: 065
  2. HERBALS\HOMEOPATHICS [Suspect]
     Active Substance: HERBALS\HOMEOPATHICS
     Indication: Product used for unknown indication
     Dosage: 1 DOSAGE FORM
     Route: 065

REACTIONS (4)
  - Rash [Recovered/Resolved]
  - Lacrimation increased [Recovered/Resolved]
  - Swollen tongue [Recovered/Resolved]
  - Anaphylactic shock [Recovered/Resolved]

NARRATIVE: CASE EVENT DATE: 20220527
